FAERS Safety Report 5112517-5 (Version None)
Quarter: 2006Q3

REPORT INFORMATION
  Report Type: 
  Country: None (occurrence: None)
  Receive Date: 20060802
  Receipt Date: 20060410
  Transmission Date: 20061208
  Serious: No
  Sender: FDA-Public Use
  Company Number: 200613477US

PATIENT
  Sex: Female

DRUGS (4)
  1. KETEK [Suspect]
     Indication: BRONCHITIS
     Dosage: 800 MG QD PO
     Route: 048
     Dates: start: 20060324, end: 20060325
  2. KETEK [Suspect]
     Indication: SINUSITIS
     Dosage: 800 MG QD PO
     Route: 048
     Dates: start: 20060324, end: 20060325
  3. ESTROGEN NOS [Concomitant]
  4. PROZAC [Concomitant]

REACTIONS (2)
  - INSOMNIA [None]
  - VISION BLURRED [None]
